FAERS Safety Report 20142645 (Version 1)
Quarter: 2021Q4

REPORT INFORMATION
  Report Type: Spontaneous
  Country: US (occurrence: US)
  Receive Date: 20211202
  Receipt Date: 20211202
  Transmission Date: 20220303
  Serious: No
  Sender: FDA-Public Use
  Company Number: US-ELI_LILLY_AND_COMPANY-US202111006632

PATIENT
  Sex: Female

DRUGS (2)
  1. ETESEVIMAB [Suspect]
     Active Substance: ETESEVIMAB
     Indication: COVID-19
     Dosage: UNK UNK, UNKNOWN
     Route: 065
     Dates: start: 20211112, end: 20211112
  2. BAMLANIVIMAB [Suspect]
     Active Substance: BAMLANIVIMAB
     Indication: COVID-19
     Dosage: UNK UNK, UNKNOWN
     Route: 065
     Dates: start: 20211112, end: 20211112

REACTIONS (8)
  - Body temperature increased [Recovered/Resolved]
  - Hyperhidrosis [Recovering/Resolving]
  - Night sweats [Unknown]
  - Cough [Unknown]
  - Headache [Not Recovered/Not Resolved]
  - Poor quality sleep [Unknown]
  - Mental impairment [Unknown]
  - Anosmia [Unknown]
